FAERS Safety Report 12597188 (Version 3)
Quarter: 2016Q3

REPORT INFORMATION
  Report Type: Spontaneous
  Country: US (occurrence: US)
  Receive Date: 20160727
  Receipt Date: 20160808
  Transmission Date: 20161109
  Serious: No
  Sender: FDA-Public Use
  Company Number: US-BEH-2016058351

PATIENT
  Sex: Female
  Weight: 85 kg

DRUGS (20)
  1. PROMETRIUM [Concomitant]
     Active Substance: PROGESTERONE
  2. WELLBUTRIN SR [Concomitant]
     Active Substance: BUPROPION HYDROCHLORIDE
  3. VIVELLE-DOT [Concomitant]
     Active Substance: ESTRADIOL
  4. ARMOUR THYROID [Concomitant]
     Active Substance: THYROID, PORCINE
  5. LIDOCAINE/PRILOCAINE [Concomitant]
     Active Substance: LIDOCAINE\PRILOCAINE
  6. MORPHINE [Concomitant]
     Active Substance: MORPHINE
  7. LIPITOR [Concomitant]
     Active Substance: ATORVASTATIN CALCIUM
  8. ATENOLOL-CHLORTHALIDONE [Concomitant]
  9. DIAZEPAM. [Concomitant]
     Active Substance: DIAZEPAM
  10. TESTOSTERONE GEL [Concomitant]
     Active Substance: TESTOSTERONE
  11. OMEPRAZOLE. [Concomitant]
     Active Substance: OMEPRAZOLE
  12. ACETAMINOPHEN. [Concomitant]
     Active Substance: ACETAMINOPHEN
  13. EPIPEN [Concomitant]
     Active Substance: EPINEPHRINE
  14. HIZENTRA [Suspect]
     Active Substance: HUMAN IMMUNOGLOBULIN G
     Indication: MIGRAINE
     Route: 058
  15. DIPHENHYDRAMINE. [Concomitant]
     Active Substance: DIPHENHYDRAMINE
  16. PROAIR HFA [Concomitant]
     Active Substance: ALBUTEROL SULFATE
  17. PROGESTERONE CREAM [Concomitant]
     Active Substance: PROGESTERONE
  18. PROVIGIL [Concomitant]
     Active Substance: MODAFINIL
  19. BOTOX [Concomitant]
     Active Substance: ONABOTULINUMTOXINA
  20. DEPLIN ALGAL OIL [Concomitant]

REACTIONS (1)
  - Headache [Recovered/Resolved]
